FAERS Safety Report 12431284 (Version 3)
Quarter: 2016Q4

REPORT INFORMATION
  Report Type: Spontaneous
  Country: BR (occurrence: BR)
  Receive Date: 20160603
  Receipt Date: 20161004
  Transmission Date: 20170207
  Serious: Yes (Other)
  Sender: FDA-Public Use
  Company Number: BR-AMGEN-BRASP2016068095

PATIENT
  Age: 78 Year
  Sex: Female

DRUGS (1)
  1. PROLIA [Suspect]
     Active Substance: DENOSUMAB
     Indication: PRODUCT USED FOR UNKNOWN INDICATION
     Dosage: UNK, Q6MO
     Route: 042
     Dates: start: 2013, end: 2015

REACTIONS (3)
  - Noninfective gingivitis [Recovered/Resolved]
  - Oral pain [Recovered/Resolved]
  - Tooth socket haemorrhage [Recovered/Resolved]

NARRATIVE: CASE EVENT DATE: 2015
